FAERS Safety Report 7538182-5 (Version None)
Quarter: 2011Q2

REPORT INFORMATION
  Report Type: 
  Country: None (occurrence: None)
  Receive Date: 20110609
  Receipt Date: 20031010
  Transmission Date: 20111010
  Serious: Yes (Other)
  Sender: FDA-Public Use
  Company Number: PHHO2003CA09219

PATIENT
  Sex: Female

DRUGS (3)
  1. TAXOL [Suspect]
  2. CARBOPLATIN [Suspect]
  3. CLOZAPINE [Suspect]
     Indication: SCHIZOPHRENIA
     Route: 048
     Dates: start: 19920114, end: 20030717

REACTIONS (2)
  - WHITE BLOOD CELL COUNT DECREASED [None]
  - OVARIAN CANCER [None]
